FAERS Safety Report 15407328 (Version 1)
Quarter: 2018Q3

REPORT INFORMATION
  Report Type: Spontaneous
  Country: BR (occurrence: BR)
  Receive Date: 20180920
  Receipt Date: 20180920
  Transmission Date: 20181010
  Serious: Yes (Other)
  Sender: FDA-Public Use
  Company Number: BR-PFIZER INC-2018374443

PATIENT
  Age: 85 Year
  Sex: Male

DRUGS (2)
  1. XALATAN [Suspect]
     Active Substance: LATANOPROST
     Indication: GLAUCOMA
     Dosage: 1 DROP, EACH EYE
     Route: 047
     Dates: start: 2005
  2. XALATAN [Suspect]
     Active Substance: LATANOPROST
     Dosage: 1 DROP, EACH EYE
     Route: 047

REACTIONS (5)
  - Cranial nerve paralysis [Unknown]
  - Dementia Alzheimer^s type [Unknown]
  - Cataract [Unknown]
  - Tendonitis [Unknown]
  - Ocular hyperaemia [Unknown]

NARRATIVE: CASE EVENT DATE: 2015
